FAERS Safety Report 17416257 (Version 3)
Quarter: 2020Q1

REPORT INFORMATION
  Report Type: Spontaneous
  Country: FR (occurrence: FR)
  Receive Date: 20200213
  Receipt Date: 20200224
  Transmission Date: 20200409
  Serious: Yes (Death)
  Sender: FDA-Public Use
  Company Number: FR-JNJFOC-20200203742

PATIENT
  Age: 5 Decade
  Sex: Female
  Weight: 55 kg

DRUGS (2)
  1. ERDAFITINIB. [Suspect]
     Active Substance: ERDAFITINIB
     Route: 065
     Dates: start: 20200116
  2. ERDAFITINIB. [Suspect]
     Active Substance: ERDAFITINIB
     Indication: BREAST CANCER METASTATIC
     Route: 065
     Dates: start: 20191230

REACTIONS (3)
  - Encephalopathy [Fatal]
  - Hepatic failure [Fatal]
  - Metastases to liver [Fatal]
